FAERS Safety Report 8537957-3 (Version None)
Quarter: 2012Q3

REPORT INFORMATION
  Report Type: 
  Country: None (occurrence: None)
  Receive Date: 20120725
  Receipt Date: 20120720
  Transmission Date: 20120928
  Serious: Yes (Hospitalization, Other)
  Sender: FDA-Public Use
  Company Number: BR-ROCHE-1091279

PATIENT
  Sex: Female
  Weight: 82 kg

DRUGS (3)
  1. MABTHERA [Suspect]
     Indication: RHEUMATOID ARTHRITIS
  2. PREDNISONE [Concomitant]
  3. DIOVAN [Concomitant]

REACTIONS (7)
  - CYST [None]
  - WEIGHT INCREASED [None]
  - GALLBLADDER INJURY [None]
  - HYPERSENSITIVITY [None]
  - PAIN [None]
  - LOWER LIMB FRACTURE [None]
  - LEIOMYOMA [None]
